FAERS Safety Report 9011164 (Version 1)
Quarter: 2013Q1

REPORT INFORMATION
  Report Type: Spontaneous
  Country: US (occurrence: US)
  Receive Date: 20130109
  Receipt Date: 20130109
  Transmission Date: 20140127
  Serious: No
  Sender: FDA-Public Use
  Company Number: US-009507513-1301USA001752

PATIENT
  Age: 74 Year
  Sex: Female

DRUGS (1)
  1. INVANZ [Suspect]
     Indication: CYSTITIS
     Dosage: 500 MG, QD
     Route: 042
     Dates: start: 20110701

REACTIONS (1)
  - Urinary tract infection [Not Recovered/Not Resolved]
